FAERS Safety Report 7734184-4 (Version None)
Quarter: 2011Q3

REPORT INFORMATION
  Report Type: 
  Country: None (occurrence: None)
  Receive Date: 20110907
  Receipt Date: 20110831
  Transmission Date: 20111222
  Serious: Yes (Hospitalization)
  Sender: FDA-Public Use
  Company Number: CN-SANOFI-AVENTIS-2011SA056547

PATIENT
  Age: 47 Year
  Sex: Female

DRUGS (5)
  1. ENOXAPARIN SODIUM [Suspect]
     Route: 058
     Dates: start: 20110105, end: 20110106
  2. INVESTIGATIONAL DRUG [Suspect]
     Route: 048
     Dates: start: 20110105, end: 20110105
  3. CEPHALOSPORINS AND RELATED SUBSTANCES [Concomitant]
     Indication: LUNG INFECTION
     Route: 048
     Dates: start: 20110103, end: 20110107
  4. ALL OTHER THERAPEUTIC PRODUCTS [Concomitant]
     Route: 048
     Dates: start: 20110104, end: 20110110
  5. HEPARIN SODIUM [Concomitant]
     Indication: PULMONARY EMBOLISM
     Route: 048
     Dates: start: 20110103, end: 20110105

REACTIONS (1)
  - MENTAL DISORDER [None]
